FAERS Safety Report 23478947 (Version 1)
Quarter: 2024Q1

REPORT INFORMATION
  Report Type: Report from Study
  Country: US (occurrence: US)
  Receive Date: 20240205
  Receipt Date: 20240205
  Transmission Date: 20240410
  Serious: No
  Sender: FDA-Public Use
  Company Number: US-EXELIXIS-CABO-23070194

PATIENT
  Age: 53 Year
  Sex: Male

DRUGS (1)
  1. CABOMETYX [Suspect]
     Active Substance: CABOZANTINIB S-MALATE
     Indication: Renal cancer
     Dosage: 20MG, 1 TABLET BY MOUTH ONCE DAILY FOR 2 WEEKS THEN TAKE 20MG, 2 TABLETS 1 TIME A DAY THEREAFTER AT
     Route: 048
     Dates: start: 202306

REACTIONS (2)
  - Hepatic enzyme increased [Unknown]
  - Inappropriate schedule of product administration [Unknown]

NARRATIVE: CASE EVENT DATE: 20230601
